FAERS Safety Report 9291275 (Version 1)
Quarter: 2013Q2

REPORT INFORMATION
  Report Type: Report from Study
  Country: US (occurrence: US)
  Receive Date: 20130515
  Receipt Date: 20130515
  Transmission Date: 20140414
  Serious: No
  Sender: FDA-Public Use
  Company Number: US-VERTEX PHARMACEUTICALS INC-2013-006034

PATIENT
  Sex: Male

DRUGS (1)
  1. VX-770 [Suspect]
     Indication: CYSTIC FIBROSIS
     Dosage: 150 MG, BID
     Route: 048
     Dates: start: 20130426

REACTIONS (7)
  - Sinusitis [Unknown]
  - Joint swelling [Unknown]
  - Skin discolouration [Unknown]
  - Feeling hot [Unknown]
  - Arthritis [Unknown]
  - Muscle swelling [Unknown]
  - Arthralgia [Unknown]
